FAERS Safety Report 5879019-X (Version None)
Quarter: 2008Q3

REPORT INFORMATION
  Report Type: 
  Country: None (occurrence: None)
  Receive Date: 20080912
  Receipt Date: 20080909
  Transmission Date: 20090109
  Serious: Yes (Hospitalization)
  Sender: FDA-Public Use
  Company Number: JP-BRISTOL-MYERS SQUIBB COMPANY-14332399

PATIENT
  Age: 77 Year
  Sex: Female

DRUGS (3)
  1. MAXIPIME [Suspect]
     Indication: FEBRILE NEUTROPENIA
     Route: 041
  2. CIPROFLOXACIN HCL [Suspect]
     Indication: FEBRILE NEUTROPENIA
     Route: 065
  3. ALLOPURINOL [Suspect]

REACTIONS (1)
  - DRUG RASH WITH EOSINOPHILIA AND SYSTEMIC SYMPTOMS [None]
